FAERS Safety Report 5113823-0 (Version None)
Quarter: 2006Q3

REPORT INFORMATION
  Report Type: 
  Country: None (occurrence: None)
  Receive Date: 20060921
  Receipt Date: 20060921
  Transmission Date: 20061208
  Serious: Yes (Other)
  Sender: FDA-Public Use
  Company Number: None

PATIENT
  Age: 73 Year
  Sex: Male
  Weight: 66.3 kg

DRUGS (4)
  1. NATRECOR [Suspect]
     Indication: CARDIAC FAILURE CONGESTIVE
     Dosage: 6ML/HR (36 MCG/HR) IV
     Route: 042
     Dates: start: 20060823
  2. FLUID (NS) BOLUS [Concomitant]
  3. PREDNISONE [Concomitant]
  4. SOLU-MEDROL [Concomitant]

REACTIONS (1)
  - HYPOTENSION [None]
